FAERS Safety Report 5164299-9 (Version None)
Quarter: 2006Q4

REPORT INFORMATION
  Report Type: 
  Country: None (occurrence: None)
  Receive Date: 20061129
  Receipt Date: 20061129
  Transmission Date: 20070319
  Serious: Yes (Other)
  Sender: FDA-Public Use
  Company Number: None

PATIENT
  Age: 64 Year
  Sex: Male
  Weight: 102.0593 kg

DRUGS (2)
  1. AMIODARONE HCL [Suspect]
     Indication: ATRIAL FLUTTER
     Dosage: 200MG 2XDAY PO
     Route: 048
     Dates: start: 20030415, end: 20030715
  2. AMIODARONE HCL [Suspect]
     Indication: ATRIAL FLUTTER
     Dosage: 400MG 2XDAY PO
     Route: 048
     Dates: start: 20030716, end: 20031015

REACTIONS (10)
  - CHRONIC FATIGUE SYNDROME [None]
  - DRUG INEFFECTIVE [None]
  - DRUG PRESCRIBING ERROR [None]
  - HEPATOCELLULAR DAMAGE [None]
  - HYPOTHALAMO-PITUITARY DISORDERS [None]
  - IMMUNE SYSTEM DISORDER [None]
  - INJURY [None]
  - LUNG DISORDER [None]
  - POST VIRAL FATIGUE SYNDROME [None]
  - THYROID DISORDER [None]
